FAERS Safety Report 5842045-0 (Version None)
Quarter: 2008Q3

REPORT INFORMATION
  Report Type: 
  Country: None (occurrence: None)
  Receive Date: 20080812
  Receipt Date: 20080731
  Transmission Date: 20090109
  Serious: Yes (Death, Hospitalization)
  Sender: FDA-Public Use
  Company Number: JP-WYE-H04538608

PATIENT
  Sex: Male
  Weight: 56.1 kg

DRUGS (9)
  1. ANCARON [Suspect]
     Indication: VENTRICULAR TACHYCARDIA
     Route: 048
     Dates: start: 20020701, end: 20080613
  2. ASPIRIN [Concomitant]
     Indication: ANGINA PECTORIS
     Route: 048
  3. DAONIL [Concomitant]
     Indication: DIABETES MELLITUS
     Route: 048
  4. MAGNESIUM OXIDE [Concomitant]
     Indication: CONSTIPATION
     Route: 048
  5. ALOSITOL [Concomitant]
     Indication: GOUT
     Route: 048
  6. PRAVASTATIN [Concomitant]
     Indication: HYPERCHOLESTEROLAEMIA
     Route: 048
  7. CARVEDILOL [Concomitant]
     Indication: CARDIAC FAILURE
     Dosage: ^2.5 MG (1.5 TABLET) AND 1.25 MG (1.5 TABLET)^
     Route: 048
  8. LASIX [Concomitant]
     Indication: CARDIAC FAILURE
     Route: 048
  9. RENIVACE [Concomitant]
     Indication: CARDIAC FAILURE
     Route: 048

REACTIONS (3)
  - INTERSTITIAL LUNG DISEASE [None]
  - SEPTIC SHOCK [None]
  - STAPHYLOCOCCAL SEPSIS [None]
